FAERS Safety Report 18378842 (Version 1)
Quarter: 2020Q4

REPORT INFORMATION
  Report Type: Spontaneous
  Country: DE (occurrence: DE)
  Receive Date: 20201014
  Receipt Date: 20201014
  Transmission Date: 20210114
  Serious: Yes (Other)
  Sender: FDA-Public Use
  Company Number: DE-ABBVIE-20K-062-3598690-00

PATIENT
  Age: 46 Year
  Sex: Female
  Weight: 60 kg

DRUGS (2)
  1. HULIO [Suspect]
     Active Substance: ADALIMUMAB-FKJP
     Indication: HIDRADENITIS
     Dosage: UNK, 40MG/0.8 ML, PEN
     Route: 058
     Dates: start: 201909
  2. HUMIRA [Suspect]
     Active Substance: ADALIMUMAB
     Indication: HIDRADENITIS
     Route: 058
     Dates: start: 201808, end: 201909

REACTIONS (2)
  - Dermatitis contact [Unknown]
  - Drug ineffective [Unknown]

NARRATIVE: CASE EVENT DATE: 201912
